FAERS Safety Report 7945768-2 (Version None)
Quarter: 2011Q4

REPORT INFORMATION
  Report Type: 
  Country: None (occurrence: None)
  Receive Date: 20111129
  Receipt Date: 20110707
  Transmission Date: 20120403
  Serious: No
  Sender: FDA-Public Use
  Company Number: US-GLAXOSMITHKLINE-A0936376A

PATIENT
  Age: 82 Year
  Sex: Female
  Weight: 45.5 kg

DRUGS (2)
  1. CARTIA XT [Suspect]
     Indication: ATRIAL FIBRILLATION
     Dosage: 120MG PER DAY
     Route: 048
     Dates: start: 20110217
  2. DIGOXIN [Suspect]
     Indication: ATRIAL FIBRILLATION
     Dosage: .25MG PER DAY
     Route: 048

REACTIONS (3)
  - SOMNOLENCE [None]
  - FATIGUE [None]
  - ASTHENIA [None]
